FAERS Safety Report 16845659 (Version 1)
Quarter: 2019Q3

REPORT INFORMATION
  Report Type: Spontaneous
  Country: CZ (occurrence: CZ)
  Receive Date: 20190924
  Receipt Date: 20190924
  Transmission Date: 20191005
  Serious: Yes (Other)
  Sender: FDA-Public Use
  Company Number: CZ-IPSEN BIOPHARMACEUTICALS, INC.-2019-17319

PATIENT
  Age: 80 Year
  Sex: Male
  Weight: 70 kg

DRUGS (1)
  1. SOMATULINE AUTOGEL 120MG [Suspect]
     Active Substance: LANREOTIDE ACETATE
     Indication: CARCINOID SYNDROME
     Route: 058
     Dates: start: 201412

REACTIONS (5)
  - Transient ischaemic attack [Unknown]
  - Weight decreased [Unknown]
  - Neoplasm progression [Unknown]
  - Diarrhoea [Unknown]
  - Metastases to testicle [Unknown]

NARRATIVE: CASE EVENT DATE: 201905
